FAERS Safety Report 16260139 (Version 2)
Quarter: 2019Q2

REPORT INFORMATION
  Report Type: Spontaneous
  Country: US (occurrence: US)
  Receive Date: 20190501
  Receipt Date: 20190610
  Transmission Date: 20190711
  Serious: No
  Sender: FDA-Public Use
  Company Number: US-PFIZER INC-2019180606

PATIENT
  Age: 63 Year
  Sex: Male
  Weight: 77.11 kg

DRUGS (5)
  1. METHOTREXATE SODIUM. [Suspect]
     Active Substance: METHOTREXATE SODIUM
     Indication: RHEUMATOID ARTHRITIS
     Dosage: UNK
  2. DELTASONE [PREDNISONE] [Concomitant]
     Dosage: 10 MG, AS NEEDED(10 MG PREDNISONE(DELTASONE) DAILY AS NEEDED)
     Dates: start: 2014
  3. FOLIC ACID. [Concomitant]
     Active Substance: FOLIC ACID
     Dosage: UNK
     Dates: start: 2014
  4. METHOTREXATE SODIUM. [Suspect]
     Active Substance: METHOTREXATE SODIUM
     Dosage: 0.8 ML, WEEKLY(INJECT 0.8 ML (20 MG TOTAL) ONCE A WEEK)
     Dates: start: 20190430
  5. MELOXICAM. [Concomitant]
     Active Substance: MELOXICAM
     Dosage: 15 MG, AS NEEDED(15 MG MELOXICAM DAILY AS NEEDED)
     Dates: start: 2014

REACTIONS (3)
  - Drug ineffective [Unknown]
  - Skin lesion [Recovered/Resolved]
  - Pruritus [Recovered/Resolved]

NARRATIVE: CASE EVENT DATE: 201806
